FAERS Safety Report 24987053 (Version 1)
Quarter: 2025Q1

REPORT INFORMATION
  Report Type: Spontaneous
  Country: PL (occurrence: PL)
  Receive Date: 20250219
  Receipt Date: 20250219
  Transmission Date: 20250409
  Serious: Yes (Hospitalization, Other)
  Sender: PFIZER
  Company Number: PL-PFIZER INC-PV202500017109

PATIENT
  Age: 27 Year
  Sex: Male

DRUGS (4)
  1. METHYLPREDNISOLONE SODIUM SUCCINATE [Suspect]
     Active Substance: METHYLPREDNISOLONE SODIUM SUCCINATE
     Indication: Nephrotic syndrome
     Route: 042
  2. RITUXIMAB [Suspect]
     Active Substance: RITUXIMAB
     Indication: Nephrotic syndrome
  3. RITUXIMAB [Suspect]
     Active Substance: RITUXIMAB
  4. PREDNISONE [Suspect]
     Active Substance: PREDNISONE
     Route: 048

REACTIONS (1)
  - Pneumocystis jirovecii pneumonia [Unknown]
